FAERS Safety Report 7741073-8 (Version None)
Quarter: 2011Q3

REPORT INFORMATION
  Report Type: 
  Country: None (occurrence: None)
  Receive Date: 20110909
  Receipt Date: 20110905
  Transmission Date: 20111222
  Serious: Yes (Other)
  Sender: FDA-Public Use
  Company Number: BE-CELGENEUS-013-C5013-11090349

PATIENT
  Sex: Female
  Weight: 49 kg

DRUGS (2)
  1. LENALIDOMIDE [Suspect]
     Route: 048
     Dates: start: 20060801, end: 20061119
  2. LENALIDOMIDE [Suspect]
     Dosage: 5 MILLIGRAM
     Route: 048
     Dates: start: 20061120, end: 20090727

REACTIONS (1)
  - OROPHARYNGEAL CANCER STAGE UNSPECIFIED [None]
